FAERS Safety Report 10188991 (Version 2)
Quarter: 2014Q2

REPORT INFORMATION
  Report Type: Report from Study
  Country: NZ (occurrence: NZ)
  Receive Date: 20140522
  Receipt Date: 20140528
  Transmission Date: 20141212
  Serious: Yes (Other)
  Sender: FDA-Public Use
  Company Number: PHHY2014NZ061796

PATIENT
  Sex: Male

DRUGS (2)
  1. CLOZARIL [Suspect]
     Dosage: UNK
     Dates: start: 20130606
  2. CLOZARIL [Suspect]
     Dosage: 15 X 100 MG
     Dates: start: 20140317, end: 20140317

REACTIONS (3)
  - Bipolar disorder [Unknown]
  - Mania [Unknown]
  - Overdose [Unknown]
